FAERS Safety Report 7204410-9 (Version None)
Quarter: 2010Q4

REPORT INFORMATION
  Report Type: 
  Country: None (occurrence: None)
  Receive Date: 20101230
  Receipt Date: 20101222
  Transmission Date: 20110411
  Serious: Yes (Death)
  Sender: FDA-Public Use
  Company Number: JP-AMGEN-JPNCT2010011973

PATIENT

DRUGS (9)
  1. PANITUMUMAB [Suspect]
     Indication: COLORECTAL CANCER
     Dosage: 6 MG/KG, Q2WK
     Route: 041
     Dates: start: 20100830, end: 20101201
  2. OXALIPLATIN [Concomitant]
     Indication: COLORECTAL CANCER
     Route: 041
     Dates: start: 20101025
  3. FLUOROURACIL [Concomitant]
     Indication: COLORECTAL CANCER
     Route: 041
     Dates: start: 20101025
  4. CALCIUM LEVOFOLINATE [Concomitant]
     Indication: COLORECTAL CANCER
     Route: 041
     Dates: start: 20101025
  5. ALOXI [Concomitant]
     Route: 042
  6. ALESION [Concomitant]
     Route: 048
  7. MINOMYCIN [Concomitant]
     Route: 048
  8. UREPEARL [Concomitant]
     Route: 062
  9. KINDAVATE [Concomitant]
     Route: 062

REACTIONS (4)
  - DEATH [None]
  - DERMATITIS ACNEIFORM [None]
  - HYPOCALCAEMIA [None]
  - HYPOMAGNESAEMIA [None]
